FAERS Safety Report 6978342-5 (Version None)
Quarter: 2010Q3

REPORT INFORMATION
  Report Type: 
  Country: None (occurrence: None)
  Receive Date: 20100913
  Receipt Date: 20100903
  Transmission Date: 20110219
  Serious: Yes (Hospitalization)
  Sender: FDA-Public Use
  Company Number: NL-BAYER-201036997GPV

PATIENT
  Age: 57 Year
  Sex: Female

DRUGS (6)
  1. SORAFENIB [Suspect]
     Indication: NON-SMALL CELL LUNG CANCER METASTATIC
     Route: 048
     Dates: start: 20100517, end: 20100823
  2. METOPROLOL TARTRATE [Concomitant]
     Dosage: TOTAL DAILY DOSE: 100 MG
     Route: 048
  3. ASCAL [Concomitant]
     Route: 048
  4. TEMAZEPAM [Concomitant]
  5. ZOPLICON [Concomitant]
     Route: 048
  6. FENTANYL CITRATE [Concomitant]
     Route: 062

REACTIONS (2)
  - CEREBRAL HAEMORRHAGE [None]
  - METASTASES TO CENTRAL NERVOUS SYSTEM [None]
